FAERS Safety Report 17258437 (Version 8)
Quarter: 2021Q1

REPORT INFORMATION
  Report Type: Report from Study
  Country: CA (occurrence: CA)
  Receive Date: 20200110
  Receipt Date: 20210223
  Transmission Date: 20210419
  Serious: Yes (Hospitalization, Other)
  Sender: FDA-Public Use
  Company Number: CA-JNJFOC-20191145991

PATIENT
  Age: 63 Year
  Sex: Female
  Weight: 54 kg

DRUGS (2)
  1. STELARA [Suspect]
     Active Substance: USTEKINUMAB
     Indication: CROHN^S DISEASE
     Route: 058
     Dates: start: 20191016
  2. STELARA [Suspect]
     Active Substance: USTEKINUMAB
     Indication: PSORIASIS

REACTIONS (11)
  - Streptococcal sepsis [Not Recovered/Not Resolved]
  - Immunodeficiency common variable [Unknown]
  - Constipation [Unknown]
  - Arthralgia [Unknown]
  - Abdominal distension [Unknown]
  - Fall [Unknown]
  - Haemoglobin decreased [Not Recovered/Not Resolved]
  - Cellulitis [Not Recovered/Not Resolved]
  - Abdominal pain [Unknown]
  - Oral fungal infection [Recovering/Resolving]
  - Fatigue [Unknown]

NARRATIVE: CASE EVENT DATE: 20200103
